FAERS Safety Report 18659445 (Version 1)
Quarter: 2020Q4

REPORT INFORMATION
  Report Type: Other
  Country: CA (occurrence: CA)
  Receive Date: 20201224
  Receipt Date: 20201224
  Transmission Date: 20210114
  Serious: No
  Sender: FDA-Public Use
  Company Number: CA-ROCHE-2492976

PATIENT
  Age: 30 Year
  Sex: Female

DRUGS (5)
  1. MELATONIN [Concomitant]
     Active Substance: MELATONIN
  2. IRON [Concomitant]
     Active Substance: IRON
  3. MAGNESIUM [Concomitant]
     Active Substance: MAGNESIUM
  4. OCREVUS [Suspect]
     Active Substance: OCRELIZUMAB
     Indication: RELAPSING-REMITTING MULTIPLE SCLEROSIS
     Dosage: 300 MG AT DAY 0 AND 14, THEN 600 MG EVERY 6 MONTH?NEXT DOSE ON 21/NOV/2019
     Route: 042
     Dates: start: 20191107
  5. CELECOXIB. [Concomitant]
     Active Substance: CELECOXIB

REACTIONS (7)
  - Throat irritation [Not Recovered/Not Resolved]
  - Influenza [Recovering/Resolving]
  - Cough [Not Recovered/Not Resolved]
  - Nasopharyngitis [Not Recovered/Not Resolved]
  - Back pain [Recovered/Resolved]
  - Sleep disorder [Unknown]
  - Headache [Recovered/Resolved]

NARRATIVE: CASE EVENT DATE: 20191120
